FAERS Safety Report 21075366 (Version 1)
Quarter: 2022Q3

REPORT INFORMATION
  Report Type: Spontaneous
  Country: CN (occurrence: CN)
  Receive Date: 20220713
  Receipt Date: 20220713
  Transmission Date: 20221026
  Serious: Yes (Other)
  Sender: FDA-Public Use
  Company Number: None

PATIENT
  Age: 42 Year
  Sex: Female
  Weight: 65 kg

DRUGS (5)
  1. CYCLOPHOSPHAMIDE [Suspect]
     Active Substance: CYCLOPHOSPHAMIDE
     Indication: Breast cancer female
     Dosage: FIRST CHEMOTHERAPY; CYCLOPHOSPHAMIDE FOR INJECTION (ENDOXAN CTX) (1000 MG) + NS (50 ML)
     Route: 042
     Dates: start: 20220428, end: 20220428
  2. SODIUM CHLORIDE [Suspect]
     Active Substance: SODIUM CHLORIDE
     Indication: Medication dilution
     Dosage: FIRST CHEMOTHERAPY; CYCLOPHOSPHAMIDE FOR INJECTION (ENDOXAN CTX) (1000 MG) + NS (50 ML)
     Route: 042
     Dates: start: 20220428, end: 20220428
  3. SODIUM CHLORIDE [Suspect]
     Active Substance: SODIUM CHLORIDE
     Dosage: FIRST CHEMOTHERAPY; EPIRUBICIN HYDROCHLORIDE FOR INJECTION (PHARMORUBICIN) (140 MG) + NS (100 ML)
     Route: 041
     Dates: start: 20220428, end: 20220428
  4. EPIRUBICIN [Suspect]
     Active Substance: EPIRUBICIN
     Indication: Breast cancer female
     Dosage: POWDER FOR INJECTION, EPIRUBICIN HYDROCHLORIDE FOR INJECTION (PHARMORUBICIN) (140 MG) + NS (100 ML)
     Route: 041
     Dates: start: 20220428, end: 20220428
  5. XIN RUI BAI [Concomitant]
     Indication: Product used for unknown indication
     Dosage: 6 MG
     Route: 058
     Dates: start: 20220429

REACTIONS (2)
  - White blood cell count decreased [Recovering/Resolving]
  - Agranulocytosis [Recovering/Resolving]

NARRATIVE: CASE EVENT DATE: 20220505
